FAERS Safety Report 7317646-3 (Version None)
Quarter: 2011Q1

REPORT INFORMATION
  Report Type: 
  Country: None (occurrence: None)
  Receive Date: 20110226
  Receipt Date: 20101124
  Transmission Date: 20110831
  Serious: No
  Sender: FDA-Public Use
  Company Number: US-ALLERGAN-1015316US

PATIENT
  Age: 49 Year
  Sex: Female

DRUGS (1)
  1. BOTOXA? [Suspect]
     Indication: PRODUCT USED FOR UNKNOWN INDICATION
     Dosage: UNK
     Dates: start: 20040101, end: 20040101

REACTIONS (2)
  - DYSPNOEA [None]
  - POST PROCEDURAL COMPLICATION [None]
